FAERS Safety Report 13096360 (Version 1)
Quarter: 2017Q1

REPORT INFORMATION
  Report Type: Spontaneous
  Country: US (occurrence: US)
  Receive Date: 20170109
  Receipt Date: 20170109
  Transmission Date: 20170428
  Serious: No
  Sender: FDA-Public Use
  Company Number: US-B.I. PHARMACEUTICALS,INC./RIDGEFIELD-2017-BI-000560

PATIENT
  Age: 78 Year
  Sex: Male

DRUGS (5)
  1. HYDRALAZINE [Concomitant]
     Active Substance: HYDRALAZINE HYDROCHLORIDE
     Indication: HYPERTENSION
     Dosage: ONE TABLET DAILY;  FORM STRENGTH: 25MG; FORMULATION: TABLET
     Route: 048
  2. SOTOLOL [Concomitant]
     Active Substance: SOTALOL
     Indication: HYPERTENSION
     Dosage: ONE TABLET BID;  FORM STRENGTH: 40MG; FORMULATION: TABLET
     Route: 048
  3. HCTZ [Concomitant]
     Active Substance: HYDROCHLOROTHIAZIDE
     Indication: HYPERTENSION
     Dosage: ONE TABLET DAILY;  FORM STRENGTH: 25MG; FORMULATION: TABLET
     Route: 048
  4. PRADAXA [Suspect]
     Active Substance: DABIGATRAN ETEXILATE MESYLATE
     Indication: ATRIAL FIBRILLATION
     Route: 048
     Dates: start: 201103
  5. TELMISARTAN. [Concomitant]
     Active Substance: TELMISARTAN
     Indication: HYPERTENSION
     Dosage: ONE TABLET DAILY;  FORM STRENGTH: 80MG; FORMULATION: TABLET
     Route: 048

REACTIONS (2)
  - Blood count abnormal [Not Recovered/Not Resolved]
  - Renal artery stenosis [Not Recovered/Not Resolved]

NARRATIVE: CASE EVENT DATE: 201612
